FAERS Safety Report 7611520-0 (Version None)
Quarter: 2011Q3

REPORT INFORMATION
  Report Type: 
  Country: None (occurrence: None)
  Receive Date: 20110715
  Receipt Date: 20110630
  Transmission Date: 20111222
  Serious: Yes (Life-Threatening, Hospitalization)
  Sender: FDA-Public Use
  Company Number: JP-WATSON-2011-10297

PATIENT
  Age: 63 Year
  Sex: Male

DRUGS (4)
  1. VECURONIUM BROMIDE [Suspect]
     Indication: INDUCTION OF ANAESTHESIA
     Dosage: UNK
  2. LIDOCAINE HYDROCHLORIDE [Suspect]
     Indication: MAINTENANCE OF ANAESTHESIA
     Dosage: UNK
     Route: 008
  3. PROPOFOL [Suspect]
     Indication: ANAESTHESIA
     Dosage: UNK
  4. FENTANYL CITRATE [Suspect]
     Indication: INDUCTION OF ANAESTHESIA
     Dosage: UNK

REACTIONS (2)
  - VENTRICULAR FIBRILLATION [None]
  - PRINZMETAL ANGINA [None]
